FAERS Safety Report 11170240 (Version 1)
Quarter: 2015Q2

REPORT INFORMATION
  Report Type: Spontaneous
  Country: JP (occurrence: None)
  Receive Date: 20150604
  Receipt Date: 20150604
  Transmission Date: 20150821
  Serious: Yes (Hospitalization, Other)
  Sender: FDA-Public Use
  Company Number: A201309457

PATIENT
  Age: 51 Year
  Sex: Male

DRUGS (45)
  1. PREZISTANAIVE (DARUNAVIR ETHANOLATE) TABLET [Suspect]
     Active Substance: DARUNAVIR
     Indication: HIV INFECTION
     Route: 048
     Dates: start: 20110121, end: 20140131
  2. MAGLAX (MAGNESIUM OXIDE) TABLET [Concomitant]
  3. CEPHADOL (DIFENIDOL HYDROCHLORIDE) ORAL DRUG UNSPECIFIED [Concomitant]
  4. TALION (AMBIGUOUS MEDICATION) TABLET [Concomitant]
  5. MYONAL (EPERISONE HYDROCHLORIDE) TABLET [Concomitant]
  6. GASMOTIN (MOSAPRIDE CITRATE) TABLET [Concomitant]
  7. ZOSYN (PIPERACILLIN SOCIUM + TAZOBACTAM SODIUM) INJECTION [Concomitant]
  8. ABACAVIR SULFATE + LAMIVUDINE [Suspect]
     Active Substance: ABACAVIR SULFATE\LAMIVUDINE
     Indication: HIV INFECTION
     Route: 048
     Dates: start: 20120111
  9. LIPIDIL [Suspect]
     Active Substance: FENOFIBRATE
     Indication: HYPERLIPIDAEMIA
     Route: 048
     Dates: start: 20130621, end: 20130816
  10. TANNALBIN (ALBUMIN TANNATE) POWDER (EXCEPT [DPO]) [Concomitant]
  11. MARZULENE-S (AZULENE + LEVOGLUTAMIDE) GRAIN [Concomitant]
  12. FAROM (FAROPENEM SODIUM) TABLET [Concomitant]
  13. FOSCAVIR (FOSCARNET SODIUM) INJECTION [Concomitant]
  14. KEFRAL (CEFACLOR) CAPSULE [Concomitant]
  15. MYCOBUTIN (RIFABUTIN) CAPSULE [Concomitant]
  16. VFEND (VORICONAZOLE) TABLET [Concomitant]
  17. ZYLORIC (ALLOPURINOL) TABLET [Concomitant]
     Active Substance: ALLOPURINOL
  18. SAWACILLIN (AMOXICILLIN TRIHYDRATE) CAPSULE [Concomitant]
  19. FLUCONAZOLE (FLUCONAZOLE) CAPSULE [Concomitant]
  20. CEFTRIAXONE NA (CEFTRIAXONE) INJECTION [Concomitant]
  21. ROHYPNOL (FLUNITRAZEPAM) TABLET [Concomitant]
  22. CEFEPIME DIHYDROCHLORIDE HYDRATE (CEFEPIME HYDROCHLORIDE) INJECTION [Concomitant]
  23. ZITHROMAC [Suspect]
     Active Substance: AZITHROMYCIN DIHYDRATE
     Indication: LUNG INFECTION
     Dates: start: 20110107, end: 20110304
  24. LOXONIN (LOXOPROFEN SODIUM) TABLET [Concomitant]
  25. CRAVIT (LEVOFLOXACIN) TABLET [Concomitant]
  26. PRODIF (FOSFLUCONAZOLE) INJECTION [Concomitant]
  27. CALONAL (PARACETAMOL) TABLET [Concomitant]
  28. DENOSINE (AMBIGUOUS MEDICATION) INJECTION [Concomitant]
  29. SAMTIREL (ATOVAQUONE) ORAL DRUG UNSPECIFIED FORM [Concomitant]
  30. ENTERONON-R (STREPTOCOCCUS FAECALIS) POWDER (EXCEPT [DPO]) [Concomitant]
  31. NAUZELIN (DOMPERIDONE) TABLET [Concomitant]
  32. NORVIR [Suspect]
     Active Substance: RITONAVIR
     Indication: HIV INFECTION
     Route: 048
     Dates: start: 20110121
  33. VALIXA (VALGANCICLOVIR) TABLET [Suspect]
     Active Substance: VALGANCICLOVIR
     Indication: CYTOMEGALOVIRUS INFECTION
     Route: 048
     Dates: start: 20110109, end: 20110218
  34. BEZATOL SR [Suspect]
     Active Substance: BEZAFIBRATE
     Indication: HYPERLIPIDAEMIA
     Route: 048
     Dates: start: 20121212, end: 20130123
  35. ZITHROMAC [Suspect]
     Active Substance: AZITHROMYCIN DIHYDRATE
     Indication: OPPORTUNISTIC INFECTION PROPHYLAXIS
     Dates: start: 20110107, end: 20110304
  36. BAKTAR [Suspect]
     Active Substance: SULFAMETHOXAZOLE\TRIMETHOPRIM
     Indication: ANTIFUNGAL PROPHYLAXIS
     Route: 048
     Dates: start: 20110107, end: 20110120
  37. ESANBUTOL [Suspect]
     Active Substance: ETHAMBUTOL HYDROCHLORIDE
     Indication: MYCOBACTERIUM AVIUM COMPLEX INFECTION
     Route: 048
     Dates: start: 20110305, end: 20111227
  38. FOSAMAX [Suspect]
     Active Substance: ALENDRONATE SODIUM
     Indication: OSTEOPOROSIS
     Route: 048
     Dates: start: 20120815, end: 20130123
  39. TRUVADA (EMTRICITABINE + TENOFOVIR DISOPROXIL FUMARATE) TABLET [Concomitant]
  40. RISUMIC (AMEZINIUM METILSULFATE) TABLET [Concomitant]
  41. OMEPTOROL (OMEPRAZOLE) TABLET [Concomitant]
  42. LOPEMIN (LOPERAMIDE HYDROCHLORIDE) CAPSULE [Concomitant]
  43. MYSLEE (ZOLPIDEM TARTRATE) TABLET [Concomitant]
     Active Substance: ZOLPIDEM TARTRATE
  44. FOLIAMIN (FOLIC ACID) TABLET [Concomitant]
  45. REBAMIPIDE (REBAMIPIDE) TABLET [Concomitant]

REACTIONS (11)
  - Hyperuricaemia [None]
  - Diabetes mellitus [None]
  - Hyperlipidaemia [None]
  - Diarrhoea [None]
  - Osteoporosis [None]
  - Mycobacterium avium complex infection [None]
  - Periarthritis [None]
  - Renal impairment [None]
  - Liver disorder [None]
  - Cytopenia [None]
  - Lymphadenitis [None]

NARRATIVE: CASE EVENT DATE: 20110120
